FAERS Safety Report 5986112-X (Version None)
Quarter: 2008Q4

REPORT INFORMATION
  Report Type: 
  Country: None (occurrence: None)
  Receive Date: 20081205
  Receipt Date: 20081205
  Transmission Date: 20090506
  Serious: Yes (Hospitalization)
  Sender: FDA-Public Use
  Company Number: None

PATIENT
  Age: 73 Year
  Sex: Male
  Weight: 83.0083 kg

DRUGS (1)
  1. WARFARIN SODIUM [Suspect]
     Indication: ATRIAL FIBRILLATION
     Dosage: 1 MG 1-2QD PO
     Route: 048
     Dates: start: 20080912, end: 20080930

REACTIONS (2)
  - GINGIVAL BLEEDING [None]
  - RENAL INFARCT [None]
